FAERS Safety Report 8784184 (Version 2)
Quarter: 2012Q4

REPORT INFORMATION
  Report Type: Spontaneous
  Country: US (occurrence: None)
  Receive Date: 20120830
  Receipt Date: 20120907
  Transmission Date: 20130627
  Serious: Yes (Other)
  Sender: FDA-Public Use
  Company Number: JPI-P-024271

PATIENT
  Age: 58 Year
  Sex: Female

DRUGS (20)
  1. XYREM (500 MILLIGRAM/MILLILITERS, SOLUTION)(SODIUM OXYBATE) [Suspect]
     Indication: EXCESSIVE DAYTIME SLEEPINESS
     Route: 048
     Dates: start: 20081009
  2. XYREM (500 MILLIGRAM/MILLILITERS, SOLUTION)(SODIUM OXYBATE) [Suspect]
     Indication: CATAPLEXY
     Route: 048
     Dates: start: 20081009
  3. XYREM (500 MILLIGRAM/MILLILITERS, SOLUTION)(SODIUM OXYBATE) [Suspect]
     Indication: EXCESSIVE DAYTIME SLEEPINESS
     Dosage: 9 gm (4.5 gm, 2 in 1 d),Oral
     Route: 048
  4. XYREM (500 MILLIGRAM/MILLILITERS, SOLUTION)(SODIUM OXYBATE) [Suspect]
     Indication: CATAPLEXY
     Dosage: 9 gm (4.5 gm, 2 in 1 d),Oral
     Route: 048
  5. IBANDRONATE SODIUM [Suspect]
     Dates: end: 20091008
  6. CHLORHEXIDINE [Suspect]
     Dates: start: 20091008, end: 20100222
  7. ALENDRONATE SODIUM [Suspect]
  8. ZAFIRLUKAST [Concomitant]
  9. ASPIRIN, EXTENDED-RELEASE DIPYRIDAMOLE [Concomitant]
  10. CITALOPRAM HYDROBROMIDE [Concomitant]
  11. LANSOPRAZOLE [Concomitant]
  12. SIMVASTATIN [Concomitant]
  13. LEVALBUTEROL [Concomitant]
  14. ACETYLSALICYLIC ACID [Concomitant]
  15. FISH OIL [Concomitant]
  16. MULTIVITAMIN CONCENTRATE [Concomitant]
  17. METFORMIN [Concomitant]
  18. BUDESONIDE AND FORMOTEROL FUMARATE DIHYDRATE [Concomitant]
  19. BUDESONIDE [Concomitant]
  20. FEXOFENADINE HYDROCHLORIDE [Concomitant]

REACTIONS (9)
  - Osteonecrosis [None]
  - Burning mouth syndrome [None]
  - Nervous system disorder [None]
  - Sleep apnoea syndrome [None]
  - Panic attack [None]
  - Tremor [None]
  - Dizziness [None]
  - Fall [None]
  - Nuclear magnetic resonance imaging brain abnormal [None]
